FAERS Safety Report 21781866 (Version 5)
Quarter: 2023Q2

REPORT INFORMATION
  Report Type: Spontaneous
  Country: PL (occurrence: PL)
  Receive Date: 20221227
  Receipt Date: 20230415
  Transmission Date: 20230722
  Serious: Yes (Other)
  Sender: FDA-Public Use
  Company Number: PL-STADA-264675

PATIENT
  Age: 41 Year
  Sex: Male

DRUGS (13)
  1. ATORVASTATIN [Interacting]
     Active Substance: ATORVASTATIN
     Indication: Dyslipidaemia
     Dosage: 40 MILLIGRAM, ONCE A DAY
     Route: 048
  2. IBUPROFEN [Interacting]
     Active Substance: IBUPROFEN
     Indication: Visceral pain
     Dosage: 1800 MILLIGRAM, ONCE A DAY
     Route: 048
  3. IBUPROFEN [Interacting]
     Active Substance: IBUPROFEN
     Indication: Pancreatitis chronic
  4. IBUPROFEN [Interacting]
     Active Substance: IBUPROFEN
     Indication: Analgesic therapy
  5. QUETIAPINE [Interacting]
     Active Substance: QUETIAPINE
     Indication: Anxiety
     Dosage: 100 MILLIGRAM, ONCE A DAY
     Route: 048
  6. QUETIAPINE [Interacting]
     Active Substance: QUETIAPINE
     Indication: Insomnia
  7. TRAMADOL [Interacting]
     Active Substance: TRAMADOL
     Indication: Visceral pain
     Dosage: 200 MILLIGRAM, ONCE A DAY,FIRST 200 MG/DAY, THEN 300 MG/DAY
     Route: 048
  8. TRAMADOL [Interacting]
     Active Substance: TRAMADOL
     Indication: Pancreatitis chronic
     Dosage: 300 MILLIGRAM, ONCE A DAY
     Route: 048
  9. TRAMADOL [Interacting]
     Active Substance: TRAMADOL
     Indication: Analgesic therapy
  10. OMEPRAZOLE [Interacting]
     Active Substance: OMEPRAZOLE
     Indication: Abdominal pain upper
     Dosage: 40 MILLIGRAM, ONCE A DAY
     Route: 048
  11. OMEPRAZOLE [Interacting]
     Active Substance: OMEPRAZOLE
     Indication: Visceral pain
  12. BUPRENORPHINE [Concomitant]
     Active Substance: BUPRENORPHINE
     Indication: Visceral pain
     Dosage: 17.5 MICROGRAM, EVERY HOUR/17.5 MICROGRAM QH (PATCH APPLIED EVERY 72 HOURS)
     Route: 065
  13. PITAVASTATIN [Interacting]
     Active Substance: PITAVASTATIN
     Indication: Product used for unknown indication
     Dosage: UNK
     Route: 065

REACTIONS (15)
  - Anxiety [Recovering/Resolving]
  - Condition aggravated [Recovered/Resolved]
  - Seizure [Recovered/Resolved]
  - Sleep disorder [Recovering/Resolving]
  - Pain [Recovered/Resolved]
  - Drug ineffective [Recovered/Resolved]
  - Drug interaction [Recovered/Resolved]
  - Abdominal pain upper [Recovered/Resolved]
  - Inadequate analgesia [Unknown]
  - Fear [Recovering/Resolving]
  - Insomnia [Recovering/Resolving]
  - Drug level increased [Unknown]
  - Overdose [Recovered/Resolved]
  - Product use in unapproved indication [Unknown]
  - Therapeutic product effect decreased [Recovered/Resolved]
